FAERS Safety Report 5798884-8 (Version None)
Quarter: 2008Q3

REPORT INFORMATION
  Report Type: 
  Country: None (occurrence: None)
  Receive Date: 20080702
  Receipt Date: 20080630
  Transmission Date: 20090109
  Serious: Yes (Other)
  Sender: FDA-Public Use
  Company Number: AU-MERCK-0807AUS00014

PATIENT
  Age: 85 Year
  Sex: Female

DRUGS (4)
  1. FOSAMAX [Suspect]
     Route: 048
  2. ASPIRIN [Concomitant]
     Route: 065
  3. INDAPAMIDE [Concomitant]
     Indication: BLOOD PRESSURE ABNORMAL
     Route: 065
  4. ATENOLOL [Concomitant]
     Indication: BLOOD PRESSURE ABNORMAL
     Route: 065

REACTIONS (3)
  - CONSTIPATION [None]
  - HAEMATOCHEZIA [None]
  - HAEMORRHOIDS [None]
